APPROVED DRUG PRODUCT: MIEBO
Active Ingredient: PERFLUOROHEXYLOCTANE
Strength: 1.338GM/ML
Dosage Form/Route: SOLUTION/DROPS;OPHTHALMIC
Application: N216675 | Product #001
Applicant: BAUSCH AND LOMB INC
Approved: May 18, 2023 | RLD: Yes | RS: Yes | Type: RX

PATENTS:
Patent 10576154 | Expires: Oct 1, 2035
Patent 10507132 | Expires: Jun 21, 2037
Patent 10449164 | Expires: Sep 12, 2033
Patent 10369117 | Expires: Sep 12, 2033
Patent 10058615 | Expires: Sep 12, 2033
Patent 11357738 | Expires: Sep 29, 2036

EXCLUSIVITY:
Code: NCE | Date: May 18, 2028